FAERS Safety Report 8477184-1 (Version None)
Quarter: 2012Q2

REPORT INFORMATION
  Report Type: 
  Country: None (occurrence: None)
  Receive Date: 20120619
  Receipt Date: 20120323
  Transmission Date: 20120825
  Serious: Yes (Other)
  Sender: FDA-Public Use
  Company Number: 2011SP057386

PATIENT
  Age: 65 Year
  Sex: Female

DRUGS (14)
  1. VICTRELIS [Suspect]
     Indication: PRODUCT USED FOR UNKNOWN INDICATION
     Dosage: 800 MG; TID; PO
     Route: 048
  2. NUVIGIL [Suspect]
     Indication: PRODUCT USED FOR UNKNOWN INDICATION
     Dosage: 50 MG; QD; PO
     Route: 048
  3. COZAAR [Suspect]
     Indication: PRODUCT USED FOR UNKNOWN INDICATION
     Dosage: 50 MG; QD; PO
     Route: 048
  4. TOPROL-XL [Suspect]
     Indication: PRODUCT USED FOR UNKNOWN INDICATION
     Dosage: 50 MG; QD; PO, 25 MG; QD; PO
     Route: 048
  5. ACETAMINOPHEN [Suspect]
     Indication: PRODUCT USED FOR UNKNOWN INDICATION
  6. PEGINTERFERON ALFA-2A [Suspect]
     Indication: PRODUCT USED FOR UNKNOWN INDICATION
     Dosage: QW; SC
     Route: 058
  7. ZOFRAN [Suspect]
     Indication: PRODUCT USED FOR UNKNOWN INDICATION
     Dosage: 8 MCG; PRN; PO
     Route: 048
  8. RYTHMOL [Suspect]
     Indication: PRODUCT USED FOR UNKNOWN INDICATION
     Dosage: 325 MG; BID; PO
     Route: 048
  9. ASPIRIN [Suspect]
     Indication: PRODUCT USED FOR UNKNOWN INDICATION
     Dosage: 81 MG; QD; PO
     Route: 048
  10. HYDROCHLORIDE [Concomitant]
  11. REGLAN [Concomitant]
  12. RIBAVIRIN [Suspect]
     Dosage: 600 MG; BID; PO
     Route: 048
  13. PRADAXA [Suspect]
     Indication: PRODUCT USED FOR UNKNOWN INDICATION
     Dosage: 150 MG; BID; PO, 75 MG; QD; PO
     Route: 048
  14. METOCLOPRAMIDE [Concomitant]

REACTIONS (34)
  - HYPOPHAGIA [None]
  - BLOOD GLUCOSE DECREASED [None]
  - PHOTOPHOBIA [None]
  - DYSPHAGIA [None]
  - DRY EYE [None]
  - DYSURIA [None]
  - SINUSITIS [None]
  - STOMATITIS [None]
  - PRODUCT PACKAGING ISSUE [None]
  - TREATMENT NONCOMPLIANCE [None]
  - TABLET PHYSICAL ISSUE [None]
  - POOR QUALITY DRUG ADMINISTERED [None]
  - BLOOD URINE PRESENT [None]
  - FEELING ABNORMAL [None]
  - NAUSEA [None]
  - EYE IRRITATION [None]
  - UNDERDOSE [None]
  - ALOPECIA [None]
  - ANAEMIA [None]
  - LEUKOPENIA [None]
  - SOMNOLENCE [None]
  - WRONG TECHNIQUE IN DRUG USAGE PROCESS [None]
  - ASTHENIA [None]
  - HAEMORRHOIDAL HAEMORRHAGE [None]
  - EYE PAIN [None]
  - DISEASE RECURRENCE [None]
  - UPPER-AIRWAY COUGH SYNDROME [None]
  - HAEMORRHOIDS [None]
  - WEIGHT DECREASED [None]
  - VULVOVAGINAL PAIN [None]
  - BLOOD BILIRUBIN INCREASED [None]
  - DYSGEUSIA [None]
  - TRANSAMINASES INCREASED [None]
  - PRURITUS [None]
